FAERS Safety Report 21688565 (Version 2)
Quarter: 2022Q4

REPORT INFORMATION
  Report Type: Spontaneous
  Country: FR (occurrence: FR)
  Receive Date: 20221206
  Receipt Date: 20221216
  Transmission Date: 20230112
  Serious: Yes (Life-Threatening)
  Sender: FDA-Public Use
  Company Number: None

PATIENT
  Age: 78 Year
  Sex: Male
  Weight: 71 kg

DRUGS (6)
  1. METHYLPREDNISOLONE [Interacting]
     Active Substance: METHYLPREDNISOLONE
     Dosage: 100 MG, 1X/DAY
     Route: 048
     Dates: start: 20221002, end: 20221007
  2. RITUXIMAB [Interacting]
     Active Substance: RITUXIMAB
     Indication: B-cell lymphoma
     Dosage: 1400 MG, SINGLE
     Route: 058
     Dates: start: 20221002, end: 20221002
  3. VINCRISTINE SULFATE [Interacting]
     Active Substance: VINCRISTINE SULFATE
     Indication: B-cell lymphoma
     Dosage: 2 MG, SINGLE
     Route: 042
     Dates: start: 20221002, end: 20221002
  4. ETOPOSIDE [Interacting]
     Active Substance: ETOPOSIDE
     Indication: B-cell lymphoma
     Dosage: 50 MG, SINGLE
     Route: 042
     Dates: start: 20221002, end: 20221002
  5. ETOPOSIDE [Interacting]
     Active Substance: ETOPOSIDE
     Dosage: 100 MG, 1X/DAY
     Route: 048
     Dates: start: 20221002, end: 20221003
  6. CYCLOPHOSPHAMIDE [Interacting]
     Active Substance: CYCLOPHOSPHAMIDE
     Indication: B-cell lymphoma
     Dosage: 1350 MG, SINGLE
     Route: 042
     Dates: start: 20221002, end: 20221002

REACTIONS (2)
  - Drug interaction [Recovering/Resolving]
  - Sepsis [Recovering/Resolving]

NARRATIVE: CASE EVENT DATE: 20221017
